FAERS Safety Report 14233992 (Version 1)
Quarter: 2017Q4

REPORT INFORMATION
  Report Type: Spontaneous
  Country: US (occurrence: US)
  Receive Date: 20171129
  Receipt Date: 20171129
  Transmission Date: 20180321
  Serious: No
  Sender: FDA-Public Use
  Company Number: US-JNJFOC-20171103003

PATIENT
  Age: 75 Year
  Sex: Female
  Weight: 80.74 kg

DRUGS (4)
  1. TYLENOL 8 HR ARTHRITIS PAIN [Suspect]
     Active Substance: ACETAMINOPHEN
     Indication: BACK PAIN
     Dosage: 2 TABLETS EVERY 5 HOURS, AND THEN TAKING 1 TABLET IN BETWEEN THE 5 HOURS
     Route: 048
  2. TYLENOL 8 HR ARTHRITIS PAIN [Suspect]
     Active Substance: ACETAMINOPHEN
     Indication: PAIN
     Route: 048
  3. TYLENOL 8 HR ARTHRITIS PAIN [Suspect]
     Active Substance: ACETAMINOPHEN
     Indication: BACK PAIN
     Route: 048
  4. TYLENOL 8 HR ARTHRITIS PAIN [Suspect]
     Active Substance: ACETAMINOPHEN
     Indication: PAIN
     Dosage: 2 TABLETS EVERY 5 HOURS, AND THEN TAKING 1 TABLET IN BETWEEN THE 5 HOURS
     Route: 048

REACTIONS (3)
  - Drug ineffective [Unknown]
  - Overdose [Unknown]
  - Inappropriate schedule of drug administration [Unknown]
